FAERS Safety Report 6298322-5 (Version None)
Quarter: 2009Q3

REPORT INFORMATION
  Report Type: 
  Country: None (occurrence: None)
  Receive Date: 20090805
  Receipt Date: 20090727
  Transmission Date: 20100115
  Serious: Yes (Hospitalization)
  Sender: FDA-Public Use
  Company Number: PHBS2002JP05690

PATIENT
  Sex: Female
  Weight: 56 kg

DRUGS (1)
  1. GLEEVEC [Suspect]
     Indication: CHRONIC MYELOID LEUKAEMIA
     Dosage: 200 MG DAILY
     Route: 048
     Dates: start: 20020108, end: 20090309

REACTIONS (9)
  - ANAEMIA [None]
  - BONE MARROW FAILURE [None]
  - FACE OEDEMA [None]
  - HYPOAESTHESIA [None]
  - LEUKOPENIA [None]
  - OEDEMA [None]
  - PNEUMONIA [None]
  - PYREXIA [None]
  - THROMBOCYTOPENIA [None]
